FAERS Safety Report 6315088-0 (Version None)
Quarter: 2009Q3

REPORT INFORMATION
  Report Type: 
  Country: None (occurrence: None)
  Receive Date: 20090817
  Receipt Date: 20090806
  Transmission Date: 20100115
  Serious: Yes (Other)
  Sender: FDA-Public Use
  Company Number: GXKR2009DK08957

PATIENT
  Age: 75 Year
  Sex: Female

DRUGS (9)
  1. FLUMAZENIL          (FLUMAZENIL) UNKNOWN [Suspect]
     Indication: DRUG TOXICITY
     Dosage: 0.4, 0.3, 0.3 MG DURING THE FIRST HOUR, AURAL
  2. FLUMAZENIL          (FLUMAZENIL) UNKNOWN [Suspect]
     Indication: INTENTIONAL OVERDOSE
     Dosage: 0.4, 0.3, 0.3 MG DURING THE FIRST HOUR, AURAL
  3. BENZODIAZEPINES             (NO INGREDIENTS/SUBSTANCES) [Concomitant]
  4. WARFARIN SODIUM [Concomitant]
  5. FLUPENTIXOL (FLUPENTIXOL) [Concomitant]
  6. TRAMADOL HCL [Concomitant]
  7. TRICYCLIC ANTIDEPRESSANTS   (NO INGREDIENTS/SUBSTANCES) [Concomitant]
  8. NALOXONE [Concomitant]
  9. ACETYLCYSTEINE [Concomitant]

REACTIONS (2)
  - HALLUCINATION [None]
  - STATUS EPILEPTICUS [None]
